FAERS Safety Report 23237914 (Version 39)
Quarter: 2025Q2

REPORT INFORMATION
  Report Type: Report from Study
  Country: AT (occurrence: AT)
  Receive Date: 20231128
  Receipt Date: 20250520
  Transmission Date: 20250716
  Serious: Yes (Other)
  Sender: ABBVIE
  Company Number: AT-ABBVIE-4224465

PATIENT
  Age: 78 Year
  Sex: Male
  Weight: 98 kg

DRUGS (160)
  1. VENETOCLAX [Suspect]
     Active Substance: VENETOCLAX
     Indication: Acute myeloid leukaemia
     Dosage: FREQUENCY TEXT: RAMP-UP PHASE, NON HEMATOLOGIC AE/SAE
     Route: 048
     Dates: start: 20240430, end: 20240520
  2. VENETOCLAX [Suspect]
     Active Substance: VENETOCLAX
     Indication: Acute myeloid leukaemia
     Dosage: FREQUENCY TEXT: RAMP-UP PHASE?UPDOSING
     Route: 048
     Dates: start: 20221014, end: 20221014
  3. VENETOCLAX [Suspect]
     Active Substance: VENETOCLAX
     Indication: Acute myeloid leukaemia
     Dosage: FREQUENCY TEXT: NON HEMATOLOGIC AE/SAE
     Route: 048
     Dates: start: 20240603, end: 20240623
  4. VENETOCLAX [Suspect]
     Active Substance: VENETOCLAX
     Indication: Acute myeloid leukaemia
     Dosage: FREQUENCY TEXT: NON HEMATOLOGIC AE / SAE
     Route: 048
     Dates: start: 20221019, end: 20221109
  5. VENETOCLAX [Suspect]
     Active Substance: VENETOCLAX
     Indication: Acute myeloid leukaemia
     Dosage: FREQUENCY TEXT: RAMP-UP PHASE?UPDOSING
     Route: 048
     Dates: start: 20221018, end: 20221018
  6. VENETOCLAX [Suspect]
     Active Substance: VENETOCLAX
     Indication: Acute myeloid leukaemia
     Dosage: UPDOSING
     Route: 048
     Dates: start: 20221015, end: 20221017
  7. VENETOCLAX [Suspect]
     Active Substance: VENETOCLAX
     Indication: Acute myeloid leukaemia
     Dosage: FREQUENCY TEXT: NON HEMATOLOGIC AE / SAE
     Route: 048
     Dates: start: 20230104, end: 20230131
  8. VENETOCLAX [Suspect]
     Active Substance: VENETOCLAX
     Indication: Acute myeloid leukaemia
     Dosage: FREQUENCY TEXT: NON HEMATOLOGIC AE / SAE
     Route: 048
     Dates: start: 20230301, end: 20230328
  9. VENETOCLAX [Suspect]
     Active Substance: VENETOCLAX
     Indication: Acute myeloid leukaemia
     Dosage: FREQUENCY TEXT: NON HEMATOLOGIC AE / SAE
     Route: 048
     Dates: start: 20230329, end: 20230425
  10. VENETOCLAX [Suspect]
     Active Substance: VENETOCLAX
     Indication: Acute myeloid leukaemia
     Dosage: FREQUENCY TEXT: NON HEMATOLOGIC AE / SAE
     Route: 048
     Dates: start: 20230530, end: 20230626
  11. VENETOCLAX [Suspect]
     Active Substance: VENETOCLAX
     Indication: Acute myeloid leukaemia
     Dosage: FREQUENCY TEXT: NON HEMATOLOGIC AE / SAE
     Route: 048
     Dates: start: 20230426, end: 20230529
  12. VENETOCLAX [Suspect]
     Active Substance: VENETOCLAX
     Indication: Acute myeloid leukaemia
     Dosage: FREQUENCY TEXT: NON HEMATOLOGIC AE / SAE
     Route: 048
     Dates: start: 20230627, end: 20230717
  13. VENETOCLAX [Suspect]
     Active Substance: VENETOCLAX
     Indication: Acute myeloid leukaemia
     Dosage: FREQUENCY TEXT: NON HEMATOLOGIC AE / SAE
     Route: 048
     Dates: start: 20230725, end: 20230821
  14. VENETOCLAX [Suspect]
     Active Substance: VENETOCLAX
     Indication: Acute myeloid leukaemia
     Dosage: FREQUENCY TEXT: NON HEMATOLOGIC AE/SAE
     Route: 048
     Dates: start: 20240109, end: 20240205
  15. VENETOCLAX [Suspect]
     Active Substance: VENETOCLAX
     Indication: Acute myeloid leukaemia
     Dosage: HEMATOLOGIC AE/SAE
     Route: 048
     Dates: start: 20230822, end: 20230918
  16. VENETOCLAX [Suspect]
     Active Substance: VENETOCLAX
     Indication: Acute myeloid leukaemia
     Dosage: HEMATOLOGIC AE/SAE
     Route: 048
     Dates: start: 20230919, end: 20231016
  17. VENETOCLAX [Suspect]
     Active Substance: VENETOCLAX
     Indication: Acute myeloid leukaemia
     Dosage: HEMATOLOGIC AE/SAE
     Route: 048
     Dates: start: 20231017, end: 20231113
  18. VENETOCLAX [Suspect]
     Active Substance: VENETOCLAX
     Indication: Acute myeloid leukaemia
     Dosage: HEMATOLOGIC AE/SAE
     Route: 048
     Dates: start: 20231114, end: 20231211
  19. VENETOCLAX [Suspect]
     Active Substance: VENETOCLAX
     Indication: Acute myeloid leukaemia
     Dosage: FREQUENCY TEXT: NON HEMATOLOGIC AE/SAE
     Route: 048
     Dates: start: 20231212, end: 20240108
  20. VENETOCLAX [Suspect]
     Active Substance: VENETOCLAX
     Indication: Acute myeloid leukaemia
     Dosage: FREQUENCY TEXT: NON HEMATOLOGIC AE/SAE
     Route: 048
     Dates: start: 20240305, end: 20240401
  21. VENETOCLAX [Suspect]
     Active Substance: VENETOCLAX
     Indication: Acute myeloid leukaemia
     Dosage: FREQUENCY TEXT: NON HEMATOLOGIC AE/SAE
     Route: 048
     Dates: start: 20240402, end: 20240422
  22. VENETOCLAX [Suspect]
     Active Substance: VENETOCLAX
     Indication: Acute myeloid leukaemia
     Dosage: MG (DOSE NOT SPECIFIED); FREQUENCY TEXT: NON HEMATOLOGIC AE/SAE
     Route: 048
     Dates: start: 20240206, end: 20240304
  23. VENETOCLAX [Suspect]
     Active Substance: VENETOCLAX
     Indication: Acute myeloid leukaemia
     Dosage: FREQUENCY TEXT: NON HEMATOLOGIC AE / SAE
     Route: 048
     Dates: start: 20230201, end: 20230228
  24. VENETOCLAX [Suspect]
     Active Substance: VENETOCLAX
     Indication: Acute myeloid leukaemia
     Dosage: FREQUENCY TEXT: NON HEMATOLOGIC AE / SAE
     Route: 048
     Dates: start: 20221110, end: 20221206
  25. VENETOCLAX [Suspect]
     Active Substance: VENETOCLAX
     Indication: Acute myeloid leukaemia
     Dosage: FREQUENCY TEXT: NON HEMATOLOGIC AE / SAE
     Route: 048
     Dates: start: 20221207, end: 20230103
  26. VENETOCLAX [Suspect]
     Active Substance: VENETOCLAX
     Indication: Acute myeloid leukaemia
     Dosage: FREQUENCY TEXT: NON HEMATOLOGIC AE/SAE
     Route: 048
     Dates: start: 20240708, end: 20240728
  27. VENETOCLAX [Suspect]
     Active Substance: VENETOCLAX
     Indication: Acute myeloid leukaemia
     Dosage: FREQUENCY TEXT: NON HEMATOLOGIC AE / SAE
     Route: 048
     Dates: start: 20240805, end: 20240825
  28. VENETOCLAX [Suspect]
     Active Substance: VENETOCLAX
     Indication: Acute myeloid leukaemia
     Dosage: FREQUENCY TEXT: NON HEMATOLOGIC AE / SAE
     Route: 048
     Dates: start: 20240902, end: 20240915
  29. VENETOCLAX [Suspect]
     Active Substance: VENETOCLAX
     Indication: Acute myeloid leukaemia
     Dosage: FREQUENCY TEXT: NON HEMATOLOGIC AE/SAE
     Route: 048
     Dates: start: 20241028, end: 20241110
  30. VENETOCLAX [Suspect]
     Active Substance: VENETOCLAX
     Indication: Acute myeloid leukaemia
     Dosage: NON HEMATOLOGIC AE/SAE
     Route: 048
     Dates: start: 20241125, end: 20241209
  31. VENETOCLAX [Suspect]
     Active Substance: VENETOCLAX
     Indication: Acute myeloid leukaemia
     Dosage: UPDOSING 0 MG
     Route: 048
     Dates: start: 20221013, end: 20221013
  32. VENETOCLAX [Suspect]
     Active Substance: VENETOCLAX
     Indication: Acute myeloid leukaemia
     Dosage: FREQUENCY TEXT: HEMATOLOGIC AE / SAE 0 MG
     Route: 048
     Dates: start: 20230718, end: 20230724
  33. VENETOCLAX [Suspect]
     Active Substance: VENETOCLAX
     Indication: Acute myeloid leukaemia
     Route: 048
     Dates: start: 20240521, end: 20240602
  34. VENETOCLAX [Suspect]
     Active Substance: VENETOCLAX
     Indication: Acute myeloid leukaemia
     Dosage: FREQUENCY TEXT: HEMATOLOGIC AE / SAE 0 MG
     Route: 048
     Dates: start: 20240423, end: 20240429
  35. VENETOCLAX [Suspect]
     Active Substance: VENETOCLAX
     Indication: Acute myeloid leukaemia
     Route: 048
     Dates: start: 20240624, end: 20240707
  36. VENETOCLAX [Suspect]
     Active Substance: VENETOCLAX
     Indication: Acute myeloid leukaemia
     Dosage: FREQUENCY TEXT: NON HEMATOLOGIC AE/SAE, DOSING 0 MG
     Route: 048
     Dates: start: 20240729, end: 20240804
  37. VENETOCLAX [Suspect]
     Active Substance: VENETOCLAX
     Indication: Acute myeloid leukaemia
     Dosage: FREQUENCY TEXT: NON HEMATOLOGIC AE/SAE, DOSING 0 MG
     Route: 048
     Dates: start: 20240826, end: 20240901
  38. VENETOCLAX [Suspect]
     Active Substance: VENETOCLAX
     Indication: Acute myeloid leukaemia
     Dosage: FREQUENCY TEXT: NON HEMATOLOGIC AE/SAE, DOSING 0 MG
     Route: 048
     Dates: start: 20240916, end: 20240929
  39. VENETOCLAX [Suspect]
     Active Substance: VENETOCLAX
     Indication: Acute myeloid leukaemia
     Dosage: FREQUENCY TEXT: NON HEMATOLOGIC AE/SAE, DOSING 0 MG
     Route: 048
     Dates: start: 20241014, end: 20241027
  40. VENETOCLAX [Suspect]
     Active Substance: VENETOCLAX
     Indication: Acute myeloid leukaemia
     Dosage: FREQUENCY TEXT: NON HEMATOLOGIC AE/SAE, DOSING 0 MG
     Route: 048
     Dates: start: 20241111, end: 20241124
  41. VENETOCLAX [Suspect]
     Active Substance: VENETOCLAX
     Indication: Acute myeloid leukaemia
     Route: 048
     Dates: start: 20241210, end: 20250101
  42. VENETOCLAX [Suspect]
     Active Substance: VENETOCLAX
     Indication: Acute myeloid leukaemia
     Route: 048
     Dates: start: 20250102, end: 20250116
  43. VENETOCLAX [Suspect]
     Active Substance: VENETOCLAX
     Indication: Acute myeloid leukaemia
     Route: 048
     Dates: start: 20250117, end: 20250202
  44. VENETOCLAX [Suspect]
     Active Substance: VENETOCLAX
     Indication: Acute myeloid leukaemia
     Route: 048
     Dates: start: 20250218, end: 20250316
  45. VENETOCLAX [Suspect]
     Active Substance: VENETOCLAX
     Indication: Acute myeloid leukaemia
     Route: 048
     Dates: start: 20250317, end: 20250403
  46. VENETOCLAX [Suspect]
     Active Substance: VENETOCLAX
     Indication: Acute myeloid leukaemia
     Route: 048
     Dates: start: 20250414, end: 20250428
  47. VENETOCLAX [Suspect]
     Active Substance: VENETOCLAX
     Indication: Acute myeloid leukaemia
     Route: 048
     Dates: start: 20250404, end: 20250413
  48. VENETOCLAX [Suspect]
     Active Substance: VENETOCLAX
     Indication: Acute myeloid leukaemia
     Dosage: FREQUENCY TEXT: NON HEMATLOGIC AE/SAE, DRUG END DATE 2024/09
     Route: 048
     Dates: start: 20240930
  49. VENETOCLAX [Suspect]
     Active Substance: VENETOCLAX
     Indication: Acute myeloid leukaemia
     Route: 048
     Dates: start: 20250203, end: 20250217
  50. VENETOCLAX [Suspect]
     Active Substance: VENETOCLAX
     Indication: Acute myeloid leukaemia
     Route: 048
     Dates: start: 20250429, end: 20250511
  51. CANDESARTAN CILEXETIL\HYDROCHLOROTHIAZIDE [Concomitant]
     Active Substance: CANDESARTAN CILEXETIL\HYDROCHLOROTHIAZIDE
     Indication: Product used for unknown indication
     Route: 062
     Dates: start: 20250324
  52. VALACYCLOVIR HYDROCHLORIDE [Concomitant]
     Active Substance: VALACYCLOVIR HYDROCHLORIDE
     Indication: Product used for unknown indication
     Route: 048
     Dates: start: 20221013
  53. FLUPREDNIDENE ACETATE [Concomitant]
     Active Substance: FLUPREDNIDENE ACETATE
     Indication: Product used for unknown indication
     Route: 062
     Dates: start: 20240607
  54. AZITHROMYCIN [Concomitant]
     Active Substance: AZITHROMYCIN
     Indication: Product used for unknown indication
     Dosage: FREQUENCY TEXT: DAILY
     Route: 048
     Dates: start: 20250225, end: 20250304
  55. PANTOPRAZOLE SODIUM [Concomitant]
     Active Substance: PANTOPRAZOLE SODIUM
     Indication: Product used for unknown indication
     Route: 048
     Dates: start: 20221013
  56. AMPHOTERICIN B [Concomitant]
     Active Substance: AMPHOTERICIN B
     Indication: Product used for unknown indication
     Route: 048
     Dates: start: 20221013
  57. ALLOPURINOL [Concomitant]
     Active Substance: ALLOPURINOL
     Indication: Product used for unknown indication
     Route: 048
     Dates: start: 20221013, end: 20230501
  58. ALLOPURINOL [Concomitant]
     Active Substance: ALLOPURINOL
     Indication: Product used for unknown indication
     Route: 048
     Dates: start: 20230503
  59. DEXPANTHENOL [Concomitant]
     Active Substance: DEXPANTHENOL
     Indication: Product used for unknown indication
     Route: 062
     Dates: start: 20221013
  60. ONDANSETRON [Concomitant]
     Active Substance: ONDANSETRON
     Indication: Product used for unknown indication
     Dates: start: 20230104
  61. ONDANSETRON [Concomitant]
     Active Substance: ONDANSETRON
     Indication: Product used for unknown indication
     Dates: start: 20221013, end: 20221020
  62. AZACITIDINE [Concomitant]
     Active Substance: AZACITIDINE
     Indication: Product used for unknown indication
     Dates: start: 20230201, end: 20230208
  63. AZACITIDINE [Concomitant]
     Active Substance: AZACITIDINE
     Indication: Product used for unknown indication
     Dates: start: 20230919, end: 20230926
  64. AZACITIDINE [Concomitant]
     Active Substance: AZACITIDINE
     Indication: Product used for unknown indication
     Dates: start: 20230530, end: 20230606
  65. AZACITIDINE [Concomitant]
     Active Substance: AZACITIDINE
     Indication: Product used for unknown indication
     Dates: start: 20231017, end: 20231024
  66. AZACITIDINE [Concomitant]
     Active Substance: AZACITIDINE
     Indication: Product used for unknown indication
     Dates: start: 20230426, end: 20230504
  67. AZACITIDINE [Concomitant]
     Active Substance: AZACITIDINE
     Indication: Product used for unknown indication
     Dates: start: 20231114, end: 20231120
  68. AZACITIDINE [Concomitant]
     Active Substance: AZACITIDINE
     Indication: Product used for unknown indication
     Dates: start: 20230329, end: 20230405
  69. AZACITIDINE [Concomitant]
     Active Substance: AZACITIDINE
     Indication: Product used for unknown indication
     Dates: start: 20230301, end: 20230308
  70. AZACITIDINE [Concomitant]
     Active Substance: AZACITIDINE
     Indication: Product used for unknown indication
     Dates: start: 20221207, end: 20221214
  71. AZACITIDINE [Concomitant]
     Active Substance: AZACITIDINE
     Indication: Product used for unknown indication
     Dates: start: 20230627, end: 20230704
  72. AZACITIDINE [Concomitant]
     Active Substance: AZACITIDINE
     Indication: Product used for unknown indication
     Dates: start: 20231212, end: 20231219
  73. AZACITIDINE [Concomitant]
     Active Substance: AZACITIDINE
     Indication: Product used for unknown indication
     Dates: start: 20240305, end: 20240312
  74. AZACITIDINE [Concomitant]
     Active Substance: AZACITIDINE
     Indication: Product used for unknown indication
     Dates: start: 20240206, end: 20240213
  75. AZACITIDINE [Concomitant]
     Active Substance: AZACITIDINE
     Indication: Product used for unknown indication
     Dates: start: 20221110, end: 20221117
  76. AZACITIDINE [Concomitant]
     Active Substance: AZACITIDINE
     Indication: Product used for unknown indication
     Dates: start: 20230822, end: 20230829
  77. AZACITIDINE [Concomitant]
     Active Substance: AZACITIDINE
     Indication: Product used for unknown indication
     Dates: start: 20230104, end: 20230112
  78. AZACITIDINE [Concomitant]
     Active Substance: AZACITIDINE
     Indication: Product used for unknown indication
     Dates: start: 20230725, end: 20230801
  79. AZACITIDINE [Concomitant]
     Active Substance: AZACITIDINE
     Indication: Product used for unknown indication
     Dates: start: 20240109, end: 20240116
  80. AZACITIDINE [Concomitant]
     Active Substance: AZACITIDINE
     Indication: Product used for unknown indication
     Dates: start: 20240402, end: 20240409
  81. AZACITIDINE [Concomitant]
     Active Substance: AZACITIDINE
     Indication: Product used for unknown indication
     Dates: start: 20240430, end: 20240507
  82. AZACITIDINE [Concomitant]
     Active Substance: AZACITIDINE
     Indication: Product used for unknown indication
     Dates: start: 20240603, end: 20240610
  83. AZACITIDINE [Concomitant]
     Active Substance: AZACITIDINE
     Indication: Product used for unknown indication
     Dates: start: 20240708, end: 20240715
  84. AZACITIDINE [Concomitant]
     Active Substance: AZACITIDINE
     Indication: Product used for unknown indication
     Dates: start: 20240805, end: 20240809
  85. AZACITIDINE [Concomitant]
     Active Substance: AZACITIDINE
     Indication: Product used for unknown indication
     Dates: start: 20240902, end: 20240909
  86. AZACITIDINE [Concomitant]
     Active Substance: AZACITIDINE
     Indication: Product used for unknown indication
     Dates: start: 20240930, end: 20241007
  87. AZACITIDINE [Concomitant]
     Active Substance: AZACITIDINE
     Indication: Product used for unknown indication
     Dates: start: 20241028, end: 20241101
  88. AZACITIDINE [Concomitant]
     Active Substance: AZACITIDINE
     Indication: Product used for unknown indication
     Dates: start: 20221013, end: 20221020
  89. AZACITIDINE [Concomitant]
     Active Substance: AZACITIDINE
     Indication: Product used for unknown indication
     Dates: start: 20241125, end: 20241202
  90. AZACITIDINE [Concomitant]
     Active Substance: AZACITIDINE
     Indication: Product used for unknown indication
     Dates: start: 20250102, end: 20250110
  91. AZACITIDINE [Concomitant]
     Active Substance: AZACITIDINE
     Indication: Product used for unknown indication
     Dates: start: 20250203, end: 20250210
  92. AZACITIDINE [Concomitant]
     Active Substance: AZACITIDINE
     Indication: Product used for unknown indication
     Dates: start: 20250317, end: 20250324
  93. AZACITIDINE [Concomitant]
     Active Substance: AZACITIDINE
     Indication: Product used for unknown indication
     Dates: start: 20250414, end: 20250421
  94. AZACITIDINE [Concomitant]
     Active Substance: AZACITIDINE
     Indication: Product used for unknown indication
     Dates: start: 20250402, end: 20250409
  95. ACETAMINOPHEN [Concomitant]
     Active Substance: ACETAMINOPHEN
     Indication: Product used for unknown indication
     Route: 048
     Dates: start: 20230202
  96. UNASYN [Concomitant]
     Active Substance: AMPICILLIN SODIUM\SULBACTAM SODIUM
     Indication: Product used for unknown indication
     Route: 042
     Dates: start: 20230208, end: 20230208
  97. Lidaprim [Concomitant]
     Indication: Product used for unknown indication
     Dosage: 800/160MG
     Route: 048
     Dates: start: 20221014
  98. ENOXAPARIN SODIUM [Concomitant]
     Active Substance: ENOXAPARIN SODIUM
     Indication: Product used for unknown indication
     Route: 058
     Dates: start: 20221207, end: 20221213
  99. ENOXAPARIN SODIUM [Concomitant]
     Active Substance: ENOXAPARIN SODIUM
     Indication: Product used for unknown indication
     Route: 058
     Dates: start: 20221013, end: 20221019
  100. ENOXAPARIN SODIUM [Concomitant]
     Active Substance: ENOXAPARIN SODIUM
     Indication: Product used for unknown indication
     Route: 058
     Dates: start: 20230329, end: 20230405
  101. ENOXAPARIN SODIUM [Concomitant]
     Active Substance: ENOXAPARIN SODIUM
     Indication: Product used for unknown indication
     Route: 058
     Dates: start: 20230208, end: 20230217
  102. ENOXAPARIN SODIUM [Concomitant]
     Active Substance: ENOXAPARIN SODIUM
     Indication: Product used for unknown indication
     Route: 058
     Dates: start: 20230530, end: 20230606
  103. ENOXAPARIN SODIUM [Concomitant]
     Active Substance: ENOXAPARIN SODIUM
     Indication: Product used for unknown indication
     Route: 058
     Dates: start: 20231114, end: 20231121
  104. ENOXAPARIN SODIUM [Concomitant]
     Active Substance: ENOXAPARIN SODIUM
     Indication: Product used for unknown indication
     Route: 058
     Dates: start: 20230822, end: 20230829
  105. ENOXAPARIN SODIUM [Concomitant]
     Active Substance: ENOXAPARIN SODIUM
     Indication: Product used for unknown indication
     Route: 058
     Dates: start: 20230426, end: 20230429
  106. ENOXAPARIN SODIUM [Concomitant]
     Active Substance: ENOXAPARIN SODIUM
     Indication: Product used for unknown indication
     Route: 058
     Dates: start: 20230502, end: 20230504
  107. ENOXAPARIN SODIUM [Concomitant]
     Active Substance: ENOXAPARIN SODIUM
     Indication: Product used for unknown indication
     Route: 058
     Dates: start: 20231212, end: 20231219
  108. ENOXAPARIN SODIUM [Concomitant]
     Active Substance: ENOXAPARIN SODIUM
     Indication: Product used for unknown indication
     Route: 058
     Dates: start: 20221110, end: 20221116
  109. CANDESARTAN CILEXETIL [Concomitant]
     Active Substance: CANDESARTAN CILEXETIL
     Indication: Product used for unknown indication
     Dosage: 1612.5MG
     Route: 048
     Dates: start: 20231219, end: 20240212
  110. CANDESARTAN CILEXETIL [Concomitant]
     Active Substance: CANDESARTAN CILEXETIL
     Indication: Product used for unknown indication
     Dosage: 16/12,5 MG
     Route: 048
     Dates: end: 20221213
  111. CANDESARTAN CILEXETIL [Concomitant]
     Active Substance: CANDESARTAN CILEXETIL
     Indication: Product used for unknown indication
     Dosage: 8/6.25 MG
     Route: 048
     Dates: start: 20221214, end: 20230110
  112. DIPYRONE [Concomitant]
     Active Substance: DIPYRONE
     Indication: Product used for unknown indication
     Route: 048
     Dates: start: 20230104
  113. Oleovit [Concomitant]
     Indication: Product used for unknown indication
     Route: 048
     Dates: start: 20230104
  114. Ceolat [Concomitant]
     Indication: Product used for unknown indication
     Route: 048
     Dates: start: 20230303
  115. Lemocin [Concomitant]
     Indication: Product used for unknown indication
     Route: 048
     Dates: start: 20230107, end: 20230107
  116. GRANULOCYTE COLONY-STIMULATING FACTOR NOS [Concomitant]
     Active Substance: GRANULOCYTE COLONY-STIMULATING FACTOR NOS
     Indication: Product used for unknown indication
     Dates: start: 20250401
  117. GRANULOCYTE COLONY-STIMULATING FACTOR NOS [Concomitant]
     Active Substance: GRANULOCYTE COLONY-STIMULATING FACTOR NOS
     Indication: Product used for unknown indication
     Dates: start: 20250317, end: 20250331
  118. GRANULOCYTE COLONY-STIMULATING FACTOR NOS [Concomitant]
     Active Substance: GRANULOCYTE COLONY-STIMULATING FACTOR NOS
     Indication: Product used for unknown indication
     Dates: start: 20221209, end: 20221214
  119. GRANULOCYTE COLONY-STIMULATING FACTOR NOS [Concomitant]
     Active Substance: GRANULOCYTE COLONY-STIMULATING FACTOR NOS
     Indication: Product used for unknown indication
     Dosage: FREQUENCY TEXT: WEEKLY
     Dates: start: 20230908, end: 20231016
  120. GRANULOCYTE COLONY-STIMULATING FACTOR NOS [Concomitant]
     Active Substance: GRANULOCYTE COLONY-STIMULATING FACTOR NOS
     Indication: Product used for unknown indication
     Dates: start: 20221121, end: 20221121
  121. GRANULOCYTE COLONY-STIMULATING FACTOR NOS [Concomitant]
     Active Substance: GRANULOCYTE COLONY-STIMULATING FACTOR NOS
     Indication: Product used for unknown indication
     Dates: start: 20230812, end: 20230821
  122. GRANULOCYTE COLONY-STIMULATING FACTOR NOS [Concomitant]
     Active Substance: GRANULOCYTE COLONY-STIMULATING FACTOR NOS
     Indication: Product used for unknown indication
     Dosage: FREQUENCY TEXT: WEEKLY
     Dates: start: 20231017, end: 20231106
  123. GRANULOCYTE COLONY-STIMULATING FACTOR NOS [Concomitant]
     Active Substance: GRANULOCYTE COLONY-STIMULATING FACTOR NOS
     Indication: Product used for unknown indication
     Dates: start: 20230829, end: 20230907
  124. GRANULOCYTE COLONY-STIMULATING FACTOR NOS [Concomitant]
     Active Substance: GRANULOCYTE COLONY-STIMULATING FACTOR NOS
     Indication: Product used for unknown indication
     Dates: start: 20231114, end: 20250316
  125. GRANULOCYTE COLONY-STIMULATING FACTOR NOS [Concomitant]
     Active Substance: GRANULOCYTE COLONY-STIMULATING FACTOR NOS
     Indication: Product used for unknown indication
     Dates: start: 20221215, end: 20230112
  126. GRANULOCYTE COLONY-STIMULATING FACTOR NOS [Concomitant]
     Active Substance: GRANULOCYTE COLONY-STIMULATING FACTOR NOS
     Indication: Product used for unknown indication
     Dosage: FREQUENCY TEXT: EVERY 3RD DAY
     Dates: start: 20231107, end: 20231113
  127. GRANULOCYTE COLONY-STIMULATING FACTOR NOS [Concomitant]
     Active Substance: GRANULOCYTE COLONY-STIMULATING FACTOR NOS
     Indication: Product used for unknown indication
     Dates: start: 20221025, end: 20221030
  128. GRANULOCYTE COLONY-STIMULATING FACTOR NOS [Concomitant]
     Active Substance: GRANULOCYTE COLONY-STIMULATING FACTOR NOS
     Indication: Product used for unknown indication
     Dates: start: 20221031, end: 20221104
  129. GRANULOCYTE COLONY-STIMULATING FACTOR NOS [Concomitant]
     Active Substance: GRANULOCYTE COLONY-STIMULATING FACTOR NOS
     Indication: Product used for unknown indication
     Dates: start: 20230114, end: 20230811
  130. GRANULOCYTE COLONY-STIMULATING FACTOR NOS [Concomitant]
     Active Substance: GRANULOCYTE COLONY-STIMULATING FACTOR NOS
     Indication: Product used for unknown indication
     Dates: start: 20221105, end: 20221110
  131. AMOXICILLIN\CLAVULANIC ACID [Concomitant]
     Active Substance: AMOXICILLIN\CLAVULANIC ACID
     Indication: Product used for unknown indication
     Dosage: 875/125 MG
     Route: 048
     Dates: start: 20231114, end: 20231128
  132. Halset [Concomitant]
     Indication: Product used for unknown indication
     Route: 048
     Dates: start: 20230110, end: 20230110
  133. Novalgin [Concomitant]
     Indication: Product used for unknown indication
     Route: 048
     Dates: start: 20230828, end: 20230829
  134. Novalgin [Concomitant]
     Indication: Product used for unknown indication
     Route: 048
     Dates: start: 20250227
  135. CANDESARTAN CILEXETIL\HYDROCHLOROTHIAZIDE [Concomitant]
     Active Substance: CANDESARTAN CILEXETIL\HYDROCHLOROTHIAZIDE
     Indication: Product used for unknown indication
     Route: 048
     Dates: start: 20230824
  136. CANDESARTAN CILEXETIL\HYDROCHLOROTHIAZIDE [Concomitant]
     Active Substance: CANDESARTAN CILEXETIL\HYDROCHLOROTHIAZIDE
     Indication: Product used for unknown indication
     Dosage: 8/6.5 MG
     Route: 048
     Dates: start: 20230329, end: 20230331
  137. AMLODIPINE BESYLATE [Concomitant]
     Active Substance: AMLODIPINE BESYLATE
     Indication: Product used for unknown indication
     Route: 048
     Dates: start: 20230201
  138. DRONABINOL [Concomitant]
     Active Substance: DRONABINOL
     Indication: Product used for unknown indication
     Route: 048
     Dates: start: 20230304
  139. DRONABINOL [Concomitant]
     Active Substance: DRONABINOL
     Indication: Product used for unknown indication
     Route: 048
     Dates: start: 20231022
  140. AMOXICILLIN\CLAVULANATE POTASSIUM [Concomitant]
     Active Substance: AMOXICILLIN\CLAVULANATE POTASSIUM
     Indication: Product used for unknown indication
     Dosage: 815/125 MG
     Route: 048
     Dates: start: 20230209, end: 20230215
  141. AMOXICILLIN\CLAVULANATE POTASSIUM [Concomitant]
     Active Substance: AMOXICILLIN\CLAVULANATE POTASSIUM
     Indication: Product used for unknown indication
     Route: 048
     Dates: start: 20231115
  142. BUTYLSCOPOLAMINE BROMIDE [Concomitant]
     Active Substance: BUTYLSCOPOLAMINE BROMIDE
     Indication: Product used for unknown indication
     Route: 048
     Dates: start: 20230702, end: 20230702
  143. POLYETHYLENE GLYCOL 3350\POTASSIUM CHLORIDE\SODIUM BICARBONATE\SODIUM [Concomitant]
     Active Substance: POLYETHYLENE GLYCOL 3350\POTASSIUM CHLORIDE\SODIUM BICARBONATE\SODIUM CHLORIDE
     Indication: Product used for unknown indication
     Dates: start: 20230201
  144. TRAMADOL [Concomitant]
     Active Substance: TRAMADOL
     Indication: Product used for unknown indication
     Route: 048
     Dates: start: 20230303, end: 20230303
  145. TRAMADOL [Concomitant]
     Active Substance: TRAMADOL
     Indication: Product used for unknown indication
     Route: 048
     Dates: start: 20230301, end: 20230302
  146. GUAR GUM [Concomitant]
     Active Substance: GUAR GUM
     Indication: Product used for unknown indication
     Route: 048
     Dates: start: 20230702, end: 20230702
  147. Guttalax [Concomitant]
     Indication: Product used for unknown indication
     Route: 048
     Dates: start: 20230823, end: 20230823
  148. Klysmol [Concomitant]
     Indication: Product used for unknown indication
     Dates: start: 20230202, end: 20230202
  149. FOLIC ACID [Concomitant]
     Active Substance: FOLIC ACID
     Indication: Product used for unknown indication
     Route: 048
     Dates: start: 20230329, end: 20230418
  150. FOLIC ACID [Concomitant]
     Active Substance: FOLIC ACID
     Indication: Product used for unknown indication
     Route: 048
     Dates: start: 20221110, end: 20221207
  151. CANDESARTAN CILEXETIL AND HYDROCHLOROTHIAZIDE [Concomitant]
     Active Substance: CANDESARTAN CILEXETIL\HYDROCHLOROTHIAZIDE
     Indication: Product used for unknown indication
     Dosage: 16/12,5 MG
     Route: 048
     Dates: start: 20230725, end: 20230821
  152. CANDESARTAN CILEXETIL AND HYDROCHLOROTHIAZIDE [Concomitant]
     Active Substance: CANDESARTAN CILEXETIL\HYDROCHLOROTHIAZIDE
     Indication: Product used for unknown indication
     Route: 048
     Dates: start: 20230822, end: 20230823
  153. Elomel [Concomitant]
     Indication: Product used for unknown indication
     Route: 058
     Dates: start: 20230824, end: 20230829
  154. Elomel [Concomitant]
     Indication: Product used for unknown indication
     Route: 058
     Dates: start: 20230725, end: 20230726
  155. Elomel [Concomitant]
     Indication: Product used for unknown indication
     Route: 058
     Dates: start: 20230426, end: 20230429
  156. Elomel [Concomitant]
     Indication: Product used for unknown indication
     Route: 058
     Dates: start: 20230104, end: 20230107
  157. FILGRASTIM [Concomitant]
     Active Substance: FILGRASTIM
     Indication: Product used for unknown indication
     Route: 058
     Dates: start: 20230822, end: 20230827
  158. ELIQUIS [Concomitant]
     Active Substance: APIXABAN
     Indication: Product used for unknown indication
     Route: 048
     Dates: start: 20240419
  159. HYDROMORPHONE HYDROCHLORIDE [Concomitant]
     Active Substance: HYDROMORPHONE HYDROCHLORIDE
     Indication: Product used for unknown indication
     Dosage: HYDAL RETARD
     Route: 048
     Dates: start: 20230303, end: 20230303
  160. HYDROMORPHONE HYDROCHLORIDE [Concomitant]
     Active Substance: HYDROMORPHONE HYDROCHLORIDE
     Indication: Product used for unknown indication
     Dosage: HYDAL RETARD
     Route: 048
     Dates: start: 20230304

REACTIONS (23)
  - Thrombophlebitis [Recovered/Resolved]
  - Leukopenia [Recovered/Resolved]
  - Illness [Not Recovered/Not Resolved]
  - Leukopenia [Recovered/Resolved]
  - Osteoarthritis [Unknown]
  - COVID-19 [Recovered/Resolved]
  - Decreased appetite [Not Recovered/Not Resolved]
  - Polyneuropathy [Recovered/Resolved]
  - Blood creatinine increased [Not Recovered/Not Resolved]
  - Arthralgia [Not Recovered/Not Resolved]
  - Oropharyngeal pain [Recovered/Resolved]
  - Vitamin D deficiency [Not Recovered/Not Resolved]
  - Nausea [Recovered/Resolved]
  - Leukopenia [Recovered/Resolved]
  - Leukopenia [Recovered/Resolved]
  - Leukopenia [Recovered/Resolved]
  - Leukocytosis [Recovered/Resolved]
  - Leukopenia [Recovered/Resolved]
  - Leukocytosis [Recovered/Resolved]
  - Influenza [Recovered/Resolved]
  - Leukopenia [Not Recovered/Not Resolved]
  - Leukopenia [Recovered/Resolved]
  - Leukopenia [Recovered/Resolved]

NARRATIVE: CASE EVENT DATE: 20221014
